FAERS Safety Report 15811193 (Version 1)
Quarter: 2019Q1

REPORT INFORMATION
  Report Type: Spontaneous
  Country: FR (occurrence: FR)
  Receive Date: 20190111
  Receipt Date: 20190111
  Transmission Date: 20190417
  Serious: Yes (Hospitalization)
  Sender: FDA-Public Use
  Company Number: FR-AUROBINDO-AUR-APL-2018-064083

PATIENT
  Age: 88 Year
  Sex: Male
  Weight: 59 kg

DRUGS (7)
  1. ECONAZOLE. [Concomitant]
     Active Substance: ECONAZOLE NITRATE
     Indication: SKIN LESION
     Dosage: 1 DOSAGE FORM, ONCE A DAY
     Route: 003
  2. DACUDOSES [Concomitant]
     Active Substance: BORIC ACID\SODIUM BORATE
     Indication: CATARACT
     Dosage: UNK
     Route: 047
  3. BISOPROLOL [Suspect]
     Active Substance: BISOPROLOL
     Indication: HYPERTENSION
     Dosage: 1.25 MILLIGRAM, ONCE A DAY
     Route: 048
     Dates: start: 201301, end: 20171012
  4. RAMIPRIL. [Concomitant]
     Active Substance: RAMIPRIL
     Indication: HYPERTENSION
     Dosage: 1.25 MILLIGRAM, ONCE A DAY
     Route: 048
  5. KARDEGIC [Concomitant]
     Active Substance: ASPIRIN DL-LYSINE
     Indication: PRODUCT USED FOR UNKNOWN INDICATION
     Dosage: 160 MILLIGRAM, ONCE A DAY
     Route: 048
  6. REFRESH CELLUVISC [Concomitant]
     Active Substance: CARBOXYMETHYLCELLULOSE SODIUM
     Indication: CATARACT
     Dosage: 4 DOSAGE FORM, DAILY
     Route: 047
  7. LEVOTHYROX [Concomitant]
     Active Substance: LEVOTHYROXINE
     Indication: HYPOTHYROIDISM
     Dosage: 25 MICROGRAM, ONCE A DAY
     Route: 048

REACTIONS (1)
  - Skin lesion [Recovering/Resolving]

NARRATIVE: CASE EVENT DATE: 201709
